FAERS Safety Report 25635079 (Version 1)
Quarter: 2025Q3

REPORT INFORMATION
  Report Type: Spontaneous
  Country: US (occurrence: US)
  Receive Date: 20250801
  Receipt Date: 20250801
  Transmission Date: 20251021
  Serious: Yes (Other)
  Sender: NOVARTIS
  Company Number: US-002147023-NVSC2025US119528

PATIENT
  Sex: Female

DRUGS (1)
  1. KISQALI [Suspect]
     Active Substance: RIBOCICLIB SUCCINATE
     Indication: Breast cancer
     Dosage: 400 MG, QD, 200 MG
     Route: 048
     Dates: start: 20250301, end: 20250711

REACTIONS (2)
  - Renal injury [Not Recovered/Not Resolved]
  - Laboratory test abnormal [Not Recovered/Not Resolved]
